FAERS Safety Report 22204801 (Version 7)
Quarter: 2023Q4

REPORT INFORMATION
  Report Type: Spontaneous
  Country: US (occurrence: US)
  Receive Date: 20230413
  Receipt Date: 20231228
  Transmission Date: 20240110
  Serious: No
  Sender: FDA-Public Use
  Company Number: US-BRISTOL-MYERS SQUIBB COMPANY-2023-052571

PATIENT
  Age: 74 Year
  Sex: Male

DRUGS (3)
  1. POMALYST [Suspect]
     Active Substance: POMALIDOMIDE
     Indication: Plasma cell myeloma
     Route: 048
     Dates: start: 202303
  2. POMALYST [Suspect]
     Active Substance: POMALIDOMIDE
     Route: 048
  3. POMALYST [Suspect]
     Active Substance: POMALIDOMIDE
     Route: 048

REACTIONS (7)
  - Fatigue [Unknown]
  - Gout [Unknown]
  - Incontinence [Unknown]
  - Gait inability [Unknown]
  - Muscular weakness [Unknown]
  - Off label use [Unknown]
  - Cystitis [Unknown]

NARRATIVE: CASE EVENT DATE: 20230327
